FAERS Safety Report 4543910-7 (Version None)
Quarter: 2005Q1

REPORT INFORMATION
  Report Type: 
  Country: None (occurrence: None)
  Receive Date: 20050103
  Receipt Date: 20041213
  Transmission Date: 20050727
  Serious: Yes (Disabling, Other)
  Sender: FDA-Public Use
  Company Number: GXKR2004GB00599

PATIENT
  Age: 56 Year
  Sex: Male
  Weight: 107 kg

DRUGS (11)
  1. ATENOLOL [Suspect]
     Indication: HYPERTENSION
     Dosage: 50 MG, ORAL
     Route: 048
     Dates: start: 20041101, end: 20041106
  2. SELEGELINE HYDROCHLORIDE [Concomitant]
  3. CO-CARELDOPA (CARBIDOPA, LEVODOPA) [Concomitant]
  4. ENTACAPONE (ENTACAPONE) [Concomitant]
  5. ROPINIROLE (ROPINIROLE) [Concomitant]
  6. AMANTADINE (AMANTADINE) [Concomitant]
  7. MIANSERIN (MIANSERIN) [Concomitant]
  8. OMEPRAZOLE [Concomitant]
  9. SILDENAFIL (SILDENAFIL) [Concomitant]
  10. IBUPROFEN [Concomitant]
  11. CO-PROXAMOL (DEXTROPROPOXYPHENE HYDROCHLORIDE, PARACETAMOL) [Concomitant]

REACTIONS (2)
  - CONDITION AGGRAVATED [None]
  - PARKINSON'S DISEASE [None]
